FAERS Safety Report 4816031-3 (Version None)
Quarter: 2005Q4

REPORT INFORMATION
  Report Type: 
  Country: None (occurrence: None)
  Receive Date: 20051026
  Receipt Date: 20051018
  Transmission Date: 20060501
  Serious: Yes (Hospitalization, Other)
  Sender: FDA-Public Use
  Company Number: GXKR2005US01824

PATIENT
  Age: 4 Year
  Sex: Male

DRUGS (1)
  1. CEFTRIAXONE [Suspect]
     Indication: LYME DISEASE
     Dosage: 1.8 + 100G, INTRAVENOUS SEE IMAGE
     Route: 042
     Dates: start: 20051008

REACTIONS (10)
  - DIPLOPIA [None]
  - DYSPNOEA [None]
  - FALL [None]
  - HEADACHE [None]
  - INTRACRANIAL PRESSURE INCREASED [None]
  - LISTLESS [None]
  - MEDICAL DEVICE COMPLICATION [None]
  - PARAESTHESIA [None]
  - PHOTOPHOBIA [None]
  - VOMITING [None]
